FAERS Safety Report 5193989-7 (Version None)
Quarter: 2006Q4

REPORT INFORMATION
  Report Type: 
  Country: None (occurrence: None)
  Receive Date: 20061228
  Receipt Date: 20060911
  Transmission Date: 20070319
  Serious: No
  Sender: FDA-Public Use
  Company Number: US-GLAXOSMITHKLINE-A0619780A

PATIENT
  Age: 4 Year
  Sex: Male
  Weight: 23.2 kg

DRUGS (5)
  1. FLOVENT [Suspect]
     Indication: ASTHMA
     Dosage: 1PUFF TWICE PER DAY
     Route: 055
     Dates: start: 20060823
  2. FLONASE [Suspect]
     Dosage: 2SPR AT NIGHT
     Route: 045
     Dates: start: 20060823
  3. SINGULAIR [Concomitant]
     Indication: ASTHMA
     Route: 048
  4. ALBUTEROL [Concomitant]
     Indication: ASTHMA
     Dosage: 2PUFF AS REQUIRED
     Route: 055
  5. EPINEPHRINE [Concomitant]
     Indication: FOOD ALLERGY
     Route: 030

REACTIONS (6)
  - INSOMNIA [None]
  - NASAL POLYPS [None]
  - PERSONALITY CHANGE [None]
  - PSYCHOMOTOR HYPERACTIVITY [None]
  - RESTLESSNESS [None]
  - TONSILLAR HYPERTROPHY [None]
